FAERS Safety Report 4335424-4 (Version None)
Quarter: 2004Q2

REPORT INFORMATION
  Report Type: 
  Country: None (occurrence: None)
  Receive Date: 20040408
  Receipt Date: 20040408
  Transmission Date: 20050107
  Serious: Yes (Life-Threatening, Hospitalization)
  Sender: FDA-Public Use
  Company Number: None

PATIENT
  Age: 88 Year
  Sex: Female
  Weight: 58.9676 kg

DRUGS (1)
  1. OMNIPAQUE 240 [Suspect]
     Indication: COMPUTERISED TOMOGRAM
     Dates: start: 20020402, end: 20020402

REACTIONS (4)
  - DIALYSIS [None]
  - DISSEMINATED INTRAVASCULAR COAGULATION [None]
  - HEPATIC FAILURE [None]
  - RENAL FAILURE ACUTE [None]
